FAERS Safety Report 21662984 (Version 1)
Quarter: 2022Q4

REPORT INFORMATION
  Report Type: Report from Study
  Country: KR (occurrence: KR)
  Receive Date: 20221130
  Receipt Date: 20221130
  Transmission Date: 20230113
  Serious: Yes (Life-Threatening)
  Sender: FDA-Public Use
  Company Number: KR-AstraZeneca-2022-60105

PATIENT
  Age: 69 Year
  Sex: Female

DRUGS (28)
  1. FAM-TRASTUZUMAB DERUXTECAN-NXKI [Suspect]
     Active Substance: FAM-TRASTUZUMAB DERUXTECAN-NXKI
     Indication: Ovarian cancer
     Dosage: 5.4 MG/KG, ONCE EVERY 3 WK
     Route: 042
     Dates: start: 20210420, end: 20210420
  2. FAM-TRASTUZUMAB DERUXTECAN-NXKI [Suspect]
     Active Substance: FAM-TRASTUZUMAB DERUXTECAN-NXKI
     Dosage: 5.4 MG/KG, ONCE EVERY 3 WK
     Route: 042
     Dates: start: 20210511, end: 20210511
  3. FAM-TRASTUZUMAB DERUXTECAN-NXKI [Suspect]
     Active Substance: FAM-TRASTUZUMAB DERUXTECAN-NXKI
     Dosage: 4.4 MG/KG, ONCE EVERY 3 WK
     Route: 042
     Dates: start: 20210601, end: 20210601
  4. FAM-TRASTUZUMAB DERUXTECAN-NXKI [Suspect]
     Active Substance: FAM-TRASTUZUMAB DERUXTECAN-NXKI
     Dosage: 4.4 MG/KG, ONCE EVERY 3 WK
     Route: 042
     Dates: start: 20210629, end: 20210629
  5. FAM-TRASTUZUMAB DERUXTECAN-NXKI [Suspect]
     Active Substance: FAM-TRASTUZUMAB DERUXTECAN-NXKI
     Dosage: 4.4 MG/KG, ONCE EVERY 3 WK
     Route: 042
     Dates: start: 20210720, end: 20210720
  6. FAM-TRASTUZUMAB DERUXTECAN-NXKI [Suspect]
     Active Substance: FAM-TRASTUZUMAB DERUXTECAN-NXKI
     Dosage: 3.2 MG/KG, ONCE EVERY 3 WK
     Route: 042
     Dates: start: 20210810, end: 20210810
  7. FAM-TRASTUZUMAB DERUXTECAN-NXKI [Suspect]
     Active Substance: FAM-TRASTUZUMAB DERUXTECAN-NXKI
     Dosage: 3.2 MG/KG, ONCE EVERY 3 WK
     Route: 042
     Dates: start: 20210907, end: 20210907
  8. AKYNZEO (NETUPITANT\PALONOSETRON) [Concomitant]
     Active Substance: NETUPITANT\PALONOSETRON
     Indication: Premedication
     Dosage: 650 MG, ONCE EVERY 3 WK
     Route: 048
     Dates: start: 20210420, end: 20210420
  9. AKYNZEO (NETUPITANT\PALONOSETRON) [Concomitant]
     Active Substance: NETUPITANT\PALONOSETRON
     Indication: Nausea
     Dosage: 1 DF, ONCE EVERY 3 WK
     Route: 048
     Dates: start: 20210422, end: 20210422
  10. GASTER [Concomitant]
     Active Substance: FAMOTIDINE
     Indication: Dyspepsia
     Dosage: 20 MG, ONCE EVERY 12HR
     Route: 048
     Dates: start: 20210415, end: 20210512
  11. NORZYME [Concomitant]
     Indication: Dyspepsia
     Dosage: 458 MG, ONCE EVERY 8HR
     Route: 048
     Dates: start: 20210418, end: 20210512
  12. AMINO ACIDS\DEXTROSE\ELECTROLYTES NOS\SOYBEAN OIL\VITAMINS [Concomitant]
     Active Substance: AMINO ACIDS\DEXTROSE\ELECTROLYTES NOS\SOYBEAN OIL\VITAMINS
     Indication: Malnutrition
     Dosage: 40 ML, QD
     Route: 042
     Dates: start: 20210419, end: 20210421
  13. PROAMINE [Concomitant]
     Indication: Malnutrition
     Dosage: 500 ML, TOTAL
     Route: 042
     Dates: start: 20210420, end: 20210420
  14. SANCUSO [Concomitant]
     Active Substance: GRANISETRON
     Indication: Nausea
     Dosage: 1 DF, TOTAL (PATCH)
     Route: 061
     Dates: start: 20210420, end: 20210420
  15. SANCUSO [Concomitant]
     Active Substance: GRANISETRON
     Dosage: 1.0 DF, ONCE EVERY 3 D
     Route: 061
     Dates: start: 20210422, end: 20210501
  16. MAGNESIUM OXIDE [Concomitant]
     Active Substance: MAGNESIUM OXIDE
     Indication: Constipation
     Dosage: 500 MG, ONCE EVERY 8HR
     Route: 048
     Dates: start: 20210421, end: 20210511
  17. ULTRACET [Concomitant]
     Active Substance: ACETAMINOPHEN\TRAMADOL HYDROCHLORIDE
     Indication: Abdominal pain
     Dosage: 1 DF, ONCE EVERY 12HR
     Route: 048
     Dates: start: 20210421, end: 20210427
  18. NEULASTA [Concomitant]
     Active Substance: PEGFILGRASTIM
     Indication: Neutrophil count decreased
     Dosage: UNK, TOTAL
     Route: 058
     Dates: start: 20210421, end: 20210421
  19. KETOTOP [KETOPROFEN] [Concomitant]
     Indication: Osteoarthritis
     Dosage: 1 DF, QD (PATCH)
     Route: 061
     Dates: start: 20210422, end: 20210505
  20. KYNEX [Concomitant]
     Active Substance: SULFAMETHOXYPYRIDAZINE
     Indication: Xerophthalmia
     Dosage: 1 DF, TOTAL
     Route: 047
     Dates: start: 20210422, end: 20210521
  21. KYTRIL [Concomitant]
     Active Substance: GRANISETRON HYDROCHLORIDE
     Indication: Nausea
     Dosage: 1 MG, QD
     Route: 048
     Dates: start: 20210427, end: 20210501
  22. MOSAPRIDE CITRATE [Concomitant]
     Active Substance: MOSAPRIDE CITRATE
     Indication: Dyspepsia
     Dosage: 5 MG, ONCE EVERY 8HR
     Route: 048
     Dates: start: 20210427, end: 20210510
  23. MACPERAN [METOCLOPRAMIDE] [Concomitant]
     Indication: Nausea
     Dosage: 10 MG, TOTAL
     Route: 042
     Dates: start: 20210427, end: 20210427
  24. NEURONTIN [GABAPENTIN] [Concomitant]
     Indication: Chronic obstructive pulmonary disease
     Dosage: 300 MG, ONCE EVERY 12HR
     Route: 048
     Dates: start: 202009, end: 20210512
  25. ENTELON [Concomitant]
     Indication: Lymphoedema
     Dosage: 150 MG, ONCE EVERY 12HR
     Route: 048
     Dates: start: 202008, end: 20210512
  26. PENIRAMIN [Concomitant]
     Indication: Premedication
     Dosage: 4 MG, TOTAL
     Route: 042
     Dates: start: 20210427, end: 20210427
  27. TROPHERINE [Concomitant]
     Indication: Ophthalmological examination
     Dosage: 1 ML, TOTAL
     Route: 047
     Dates: start: 20210416, end: 20210416
  28. TAMIPOOL [ASCORBIC ACID;BIOTIN;CYANOCOBALAMIN;DEXPANTHENOL;ERGOCALCIFE [Concomitant]
     Indication: Prophylaxis
     Dosage: 5 ML, TOTAL
     Route: 042
     Dates: start: 20210419, end: 20210419

REACTIONS (1)
  - Platelet count decreased [Recovered/Resolved]

NARRATIVE: CASE EVENT DATE: 20210427
